FAERS Safety Report 8459381-4 (Version None)
Quarter: 2012Q2

REPORT INFORMATION
  Report Type: 
  Country: None (occurrence: None)
  Receive Date: 20120615
  Receipt Date: 20120601
  Transmission Date: 20120825
  Serious: Yes (Life-Threatening, Hospitalization)
  Sender: FDA-Public Use
  Company Number: 2012P1039816

PATIENT
  Age: 77 Year
  Sex: Male

DRUGS (10)
  1. RANITIDINE HCL [Suspect]
     Indication: PREMEDICATION
     Dosage: 50 MG; IV
     Route: 042
     Dates: start: 20101116, end: 20101116
  2. METHYLPREDNISOLONE SODIUM SUCCINATE [Suspect]
     Indication: PREMEDICATION
     Dosage: 80 MG; IV
     Route: 042
     Dates: start: 20101116, end: 20101116
  3. FLUINDIONE [Concomitant]
  4. DEXCHLORPHENIRAMINE MALEATE [Concomitant]
  5. CANCER CHEMOTHERAPY [Concomitant]
  6. GRANISETRON [Suspect]
     Indication: PREMEDICATION
     Dosage: 1 MG; IV
     Route: 042
     Dates: start: 20101116, end: 20101116
  7. CAPTOPRIL AND HYDROCHLOROTHIAZIDE [Concomitant]
  8. FERROUS SULFATE TAB [Concomitant]
  9. FOLIC ACID [Concomitant]
  10. SOTALOL HCL [Concomitant]

REACTIONS (4)
  - CARDIO-RESPIRATORY ARREST [None]
  - CONVULSION [None]
  - ATRIAL FIBRILLATION [None]
  - ANAPHYLACTIC SHOCK [None]
